FAERS Safety Report 14216588 (Version 12)
Quarter: 2018Q1

REPORT INFORMATION
  Report Type: Spontaneous
  Country: US (occurrence: US)
  Receive Date: 20171122
  Receipt Date: 20180305
  Transmission Date: 20180508
  Serious: Yes (Hospitalization, Other)
  Sender: FDA-Public Use
  Company Number: US-ACTELION-A-NJ2017-162728

PATIENT
  Age: 60 Year
  Sex: Female
  Weight: 77.98 kg

DRUGS (4)
  1. VELETRI [Suspect]
     Active Substance: EPOPROSTENOL
     Dosage: 9.56 NG/KG, PER MIN
     Route: 042
  2. VELETRI [Suspect]
     Active Substance: EPOPROSTENOL
     Dosage: 28 NG/KG, PER MIN
     Route: 042
  3. VELETRI [Suspect]
     Active Substance: EPOPROSTENOL
     Dosage: 17.2 NG/KG, PER MIN
     Route: 042
  4. VELETRI [Suspect]
     Active Substance: EPOPROSTENOL
     Indication: PULMONARY ARTERIAL HYPERTENSION
     Dosage: 30.15 NG/KG, PER MIN
     Route: 042

REACTIONS (22)
  - Haemodialysis [Unknown]
  - Pyrexia [Unknown]
  - Catheter site pain [Unknown]
  - Hypotension [Unknown]
  - Terminal state [Unknown]
  - Hernia repair [Unknown]
  - Pancytopenia [Unknown]
  - Device related infection [Unknown]
  - Nausea [Unknown]
  - Vomiting [Unknown]
  - Asthenia [Unknown]
  - Catheter site swelling [Unknown]
  - Presyncope [Unknown]
  - Cardiogenic shock [Unknown]
  - Malnutrition [Recovering/Resolving]
  - Dehydration [Unknown]
  - Diarrhoea [Unknown]
  - Dizziness [Unknown]
  - Decreased appetite [Unknown]
  - Sepsis [Unknown]
  - Hypovolaemic shock [Unknown]
  - Catheter management [Unknown]
